FAERS Safety Report 22323751 (Version 1)
Quarter: 2023Q2

REPORT INFORMATION
  Report Type: Spontaneous
  Country: CN (occurrence: CN)
  Receive Date: 20230516
  Receipt Date: 20230516
  Transmission Date: 20230722
  Serious: Yes (Hospitalization, Other)
  Sender: FDA-Public Use
  Company Number: CN-MLMSERVICE-20230427-4252780-1

PATIENT
  Age: 39 Year
  Sex: Male

DRUGS (4)
  1. CISPLATIN [Suspect]
     Active Substance: CISPLATIN
     Indication: Undifferentiated nasopharyngeal carcinoma
     Dates: start: 2015, end: 2015
  2. GEMCITABINE [Suspect]
     Active Substance: GEMCITABINE
     Indication: Undifferentiated nasopharyngeal carcinoma
     Dosage: DAY 1, DAY 8
     Dates: start: 201507, end: 2015
  3. NIMOTUZUMAB [Suspect]
     Active Substance: NIMOTUZUMAB
     Indication: Undifferentiated nasopharyngeal carcinoma
     Dosage: 200 MG, DAY 1*8 TIMES
     Dates: start: 201507
  4. CISPLATIN [Suspect]
     Active Substance: CISPLATIN
     Indication: Undifferentiated nasopharyngeal carcinoma
     Dates: start: 201507, end: 2015

REACTIONS (1)
  - VIth nerve paralysis [Recovered/Resolved]

NARRATIVE: CASE EVENT DATE: 20211001
